FAERS Safety Report 9775893 (Version 6)
Quarter: 2014Q2

REPORT INFORMATION
  Report Type: Report from Study
  Country: FR (occurrence: FR)
  Receive Date: 20131220
  Receipt Date: 20140521
  Transmission Date: 20141212
  Serious: Yes (Other)
  Sender: FDA-Public Use
  Company Number: FR-GLAXOSMITHKLINE-B0954001A

PATIENT
  Age: 62 Year
  Sex: Female
  Weight: 57 kg

DRUGS (2)
  1. PAZOPANIB [Suspect]
     Indication: THYROID CANCER
     Dosage: 600MG PER DAY
     Route: 048
     Dates: start: 20131106, end: 20131203
  2. FOSINOPRIL [Concomitant]
     Indication: HYPERTENSION
     Dosage: 10MG PER DAY
     Route: 048
     Dates: start: 20131121

REACTIONS (1)
  - Hepatocellular injury [Recovered/Resolved]
